FAERS Safety Report 25812894 (Version 3)
Quarter: 2025Q4

REPORT INFORMATION
  Report Type: Spontaneous
  Country: US (occurrence: US)
  Receive Date: 20250917
  Receipt Date: 20251124
  Transmission Date: 20260118
  Serious: No
  Sender: SANOFI AVENTIS
  Company Number: US-SA-2025SA276547

PATIENT
  Sex: Female
  Weight: 56.82 kg

DRUGS (2)
  1. DUPIXENT [Suspect]
     Active Substance: DUPILUMAB
     Indication: Nasal polyps
     Dosage: 300 MG, QOW
     Route: 058
  2. DUPIXENT [Suspect]
     Active Substance: DUPILUMAB
     Indication: Asthma

REACTIONS (6)
  - Cough [Unknown]
  - Muscle spasms [Unknown]
  - Malaise [Unknown]
  - Arthralgia [Unknown]
  - Therapeutic response decreased [Unknown]
  - Device ineffective [Unknown]
